FAERS Safety Report 4601177-5 (Version None)
Quarter: 2005Q1

REPORT INFORMATION
  Report Type: 
  Country: None (occurrence: None)
  Receive Date: 20050204
  Receipt Date: 20040422
  Transmission Date: 20050727
  Serious: Yes (Other)
  Sender: FDA-Public Use
  Company Number: US-SHR-04-021358

PATIENT
  Age: 21 Year
  Sex: Female
  Weight: 96.1 kg

DRUGS (3)
  1. MIRENA [Suspect]
     Indication: CONTRACEPTION
     Dosage: 20 UG/DAY, CONT, INTRA-UTERINE
     Route: 015
     Dates: start: 20040116, end: 20040219
  2. LASIX/SCH/ (FUROSEMIDE SODIUM) [Concomitant]
  3. DIGOXIN [Concomitant]

REACTIONS (1)
  - UTERINE PERFORATION [None]
